FAERS Safety Report 6302339-1 (Version None)
Quarter: 2009Q3

REPORT INFORMATION
  Report Type: 
  Country: None (occurrence: None)
  Receive Date: 20090810
  Receipt Date: 20090731
  Transmission Date: 20100115
  Serious: Yes (Hospitalization)
  Sender: FDA-Public Use
  Company Number: US-CELGENEUS-163-21880-09041649

PATIENT
  Sex: Male

DRUGS (2)
  1. REVLIMID [Suspect]
     Indication: MULTIPLE MYELOMA
     Route: 048
     Dates: start: 20080218, end: 20090409
  2. REVLIMID [Suspect]
     Route: 048
     Dates: start: 20090412

REACTIONS (2)
  - MEMORY IMPAIRMENT [None]
  - RENAL DISORDER [None]
